FAERS Safety Report 9743958 (Version 1)
Quarter: 2013Q4

REPORT INFORMATION
  Report Type: Spontaneous
  Country: US (occurrence: US)
  Receive Date: 20131210
  Receipt Date: 20131210
  Transmission Date: 20140711
  Serious: No
  Sender: FDA-Public Use
  Company Number: US-BIOGENIDEC-2013BI097984

PATIENT
  Age: 59 Year
  Sex: Female

DRUGS (14)
  1. TECFIDERA [Suspect]
     Indication: MULTIPLE SCLEROSIS
     Route: 048
     Dates: start: 20130819
  2. AMPYRA [Concomitant]
     Dates: start: 20130313
  3. ADDERALL [Concomitant]
  4. ATIVAN [Concomitant]
  5. CALCIUM CARBONATE [Concomitant]
  6. TIZANIDINE [Concomitant]
  7. ADVIL [Concomitant]
  8. ALEVE [Concomitant]
  9. CINNAMON [Concomitant]
  10. CRANBERRY [Concomitant]
  11. GINKGO [Concomitant]
  12. GLUCOSAMINE [Concomitant]
  13. MOBIC [Concomitant]
  14. PARACETAMOL [Concomitant]

REACTIONS (1)
  - Flushing [Unknown]
